FAERS Safety Report 13083765 (Version 3)
Quarter: 2017Q1

REPORT INFORMATION
  Report Type: Report from Study
  Country: US (occurrence: US)
  Receive Date: 20170104
  Receipt Date: 20170209
  Transmission Date: 20170428
  Serious: Yes (Death, Other)
  Sender: FDA-Public Use
  Company Number: PHEH2016US034165

PATIENT
  Sex: Female
  Weight: 83 kg

DRUGS (2)
  1. TAFINLAR [Suspect]
     Active Substance: DABRAFENIB MESYLATE
     Indication: CHOLANGIOCARCINOMA
     Dosage: UNK
     Route: 048
     Dates: start: 20161028, end: 20161214
  2. MEKINIST [Suspect]
     Active Substance: TRAMETINIB DIMETHYL SULFOXIDE
     Indication: CHOLANGIOCARCINOMA
     Dosage: UNK
     Route: 048
     Dates: start: 20161028, end: 20161214

REACTIONS (7)
  - Malignant neoplasm progression [Fatal]
  - Fatigue [Fatal]
  - Decreased appetite [Fatal]
  - Hypoproteinaemia [Fatal]
  - Product use issue [Unknown]
  - Diarrhoea [Fatal]
  - Gravitational oedema [Unknown]
